FAERS Safety Report 25405574 (Version 1)
Quarter: 2025Q2

REPORT INFORMATION
  Report Type: Spontaneous
  Country: GB (occurrence: GB)
  Receive Date: 20250606
  Receipt Date: 20250606
  Transmission Date: 20250716
  Serious: Yes (Other)
  Sender: TEVA
  Company Number: GB-MHRA-TPP25626869C22275880YC1748889013529

PATIENT
  Age: 79 Year
  Sex: Male
  Weight: 97 kg

DRUGS (11)
  1. LISINOPRIL [Suspect]
     Active Substance: LISINOPRIL
     Indication: Ill-defined disorder
     Route: 065
     Dates: start: 20250602
  2. AMLODIPINE [Concomitant]
     Active Substance: AMLODIPINE BESYLATE
     Indication: Ill-defined disorder
     Dosage: ONE TO BE TAKEN EACH DAY, DAILY DOSE : 1 DOSAGE FORM DAILY
     Route: 065
     Dates: start: 20240328
  3. BETAHISTINE [Concomitant]
     Active Substance: BETAHISTINE
     Indication: Ill-defined disorder
     Route: 065
     Dates: start: 20240328
  4. LISINOPRIL [Concomitant]
     Active Substance: LISINOPRIL
     Indication: Ill-defined disorder
     Dosage: ONE TO BE TAKEN EACH MORNING AND AT NIGHT, DAILY DOSE: 2 DOSAGE FORM DAILY
     Route: 065
     Dates: start: 20240328
  5. IBUPROFEN [Concomitant]
     Active Substance: IBUPROFEN
     Indication: Ill-defined disorder
     Route: 065
     Dates: start: 20240328
  6. LANSOPRAZOLE [Concomitant]
     Active Substance: LANSOPRAZOLE
     Indication: Ill-defined disorder
     Dosage: ONE DAILY, DAILY DOSE : 1 DOSAGE FORM DAILY
     Route: 065
     Dates: start: 20240328
  7. DOXAZOSIN [Concomitant]
     Active Substance: DOXAZOSIN MESYLATE
     Indication: Ill-defined disorder
     Dosage: TAKE ONE DAILY TAKE AT NIGHT - STOP LISINOPRIL , DAILY DOSE : 1 DOSAGE FORM DAILY
     Route: 065
     Dates: start: 20250602
  8. COCODAMOL [Concomitant]
     Active Substance: ACETAMINOPHEN\CODEINE PHOSPHATE
     Indication: Ill-defined disorder
     Dosage: 2 TABLETS TAKEN UPTO FOUR TIMES DAILY FOR PAIN, DAILY DOSE: 8 DOSAGE FORM DAILY
     Route: 065
     Dates: start: 20240328
  9. BENDROFLUMETHIAZIDE [Concomitant]
     Active Substance: BENDROFLUMETHIAZIDE
     Indication: Ill-defined disorder
     Dosage: 1 EVERY MORNING, DAILY DOSE : 1 DOSAGE FORM DAILY
     Route: 065
     Dates: start: 20240328
  10. BECLOMETHASONE DIPROPIONATE [Concomitant]
     Active Substance: BECLOMETHASONE DIPROPIONATE
     Indication: Ill-defined disorder
     Dosage: INHALE ONE PUFF MORNING AND ONE PUFF IN THE EVE, DAILY DOSE: 2 DOSAGE FORM DAILY
     Route: 065
     Dates: start: 20241115
  11. PRAVASTATIN [Concomitant]
     Active Substance: PRAVASTATIN
     Indication: Ill-defined disorder
     Dosage: TAKE ONE AT NIGHT, DAILY DOSE : 1 DOSAGE FORM DAILY
     Route: 065
     Dates: start: 20240328

REACTIONS (1)
  - Oedema peripheral [Recovering/Resolving]

NARRATIVE: CASE EVENT DATE: 20250602
